FAERS Safety Report 6980718-7 (Version None)
Quarter: 2010Q3

REPORT INFORMATION
  Report Type: 
  Country: None (occurrence: None)
  Receive Date: 20100914
  Receipt Date: 20100817
  Transmission Date: 20110219
  Serious: Yes (Hospitalization)
  Sender: FDA-Public Use
  Company Number: US-BAYER-201026126NA

PATIENT
  Age: 26 Year
  Sex: Female
  Weight: 75 kg

DRUGS (12)
  1. YASMIN [Suspect]
     Indication: CONTRACEPTION
     Route: 048
  2. YAZ [Suspect]
     Indication: CONTRACEPTION
     Route: 048
     Dates: start: 20090601, end: 20091101
  3. DYAZIDE [Concomitant]
     Dates: start: 20090101
  4. TUMS [Concomitant]
  5. ROLAIDS [Concomitant]
  6. PEPTO BISMOL [Concomitant]
     Indication: PAIN
     Dates: start: 20091201
  7. ALKA SELTZER [Concomitant]
     Indication: PAIN
     Dates: start: 20091201
  8. ORTHO TRICYCLINE LO [Concomitant]
  9. DEPO-PROVERA [Concomitant]
  10. MICRONOR [Concomitant]
  11. ZIAC [Concomitant]
     Dosage: 2.5
  12. FLAGYL [Concomitant]
     Indication: VAGINITIS BACTERIAL

REACTIONS (4)
  - CHOLECYSTITIS CHRONIC [None]
  - CHOLELITHIASIS [None]
  - NAUSEA [None]
  - VOMITING [None]
